FAERS Safety Report 5448098-6 (Version None)
Quarter: 2007Q3

REPORT INFORMATION
  Report Type: 
  Country: None (occurrence: None)
  Receive Date: 20070801
  Receipt Date: 20070525
  Transmission Date: 20080115
  Serious: No
  Sender: FDA-Public Use
  Company Number: 2007-US-000231

PATIENT
  Age: 11 Year
  Sex: Male
  Weight: 33.1 kg

DRUGS (3)
  1. INCRELEX [Suspect]
     Indication: BODY HEIGHT BELOW NORMAL
     Dosage: 0.12 ML, BID; 0.26 ML, BID, SUBCUTANEOUS
     Dates: start: 20060918
  2. CLARITIN [Concomitant]
  3. SINGULAIR [Concomitant]

REACTIONS (1)
  - HAIR TEXTURE ABNORMAL [None]
